FAERS Safety Report 17685785 (Version 2)
Quarter: 2020Q4

REPORT INFORMATION
  Report Type: Spontaneous
  Country: CA (occurrence: CA)
  Receive Date: 20200420
  Receipt Date: 20201020
  Transmission Date: 20210113
  Serious: Yes (Hospitalization, Other)
  Sender: FDA-Public Use
  Company Number: CA-SAMSUNG BIOEPIS-SB-2020-13428

PATIENT
  Age: 40 Year
  Sex: Female
  Weight: 61 kg

DRUGS (4)
  1. CIPROFLOXACIN HYDROCHLORIDE. [Concomitant]
     Active Substance: CIPROFLOXACIN HYDROCHLORIDE
     Indication: CONDITION AGGRAVATED
     Dosage: UNKNOWN
     Route: 065
  2. INFLIXIMAB [Suspect]
     Active Substance: INFLIXIMAB
     Indication: CROHN^S DISEASE
     Route: 042
  3. CIPRO [Concomitant]
     Active Substance: CIPROFLOXACIN HYDROCHLORIDE
     Indication: CONDITION AGGRAVATED
     Dosage: UNKNOWN
     Route: 065
  4. INFLIXIMAB [Suspect]
     Active Substance: INFLIXIMAB
     Indication: COLITIS ULCERATIVE
     Route: 042

REACTIONS (10)
  - Depressed mood [Recovered/Resolved]
  - Small intestinal obstruction [Recovered/Resolved]
  - Abdominal pain [Recovered/Resolved]
  - Fatigue [Recovered/Resolved]
  - Therapeutic product effect incomplete [Recovered/Resolved]
  - Condition aggravated [Recovered/Resolved]
  - Microcytic anaemia [Recovered/Resolved]
  - Thrombocytosis [Recovered/Resolved]
  - Flatulence [Recovered/Resolved]
  - Gastrointestinal bacterial overgrowth [Recovered/Resolved]
